FAERS Safety Report 15753358 (Version 1)
Quarter: 2018Q4

REPORT INFORMATION
  Report Type: Report from Study
  Country: None (occurrence: US)
  Receive Date: 20181222
  Receipt Date: 20181222
  Transmission Date: 20190205
  Serious: Yes (Hospitalization, Other)
  Sender: FDA-Public Use
  Company Number: US-ABBVIE-18K-163-2523385-00

PATIENT
  Age: 65 Year
  Sex: Male

DRUGS (1)
  1. HUMIRA [Suspect]
     Active Substance: ADALIMUMAB
     Indication: CROHN^S DISEASE
     Route: 058

REACTIONS (16)
  - Somnolence [Recovered/Resolved]
  - Blood potassium decreased [Unknown]
  - Back pain [Recovered/Resolved]
  - Pain [Unknown]
  - Asthenia [Unknown]
  - Malaise [Not Recovered/Not Resolved]
  - Computerised tomogram abdomen abnormal [Unknown]
  - Malaise [Recovered/Resolved]
  - Abdominal pain upper [Not Recovered/Not Resolved]
  - Nausea [Unknown]
  - Back pain [Recovered/Resolved]
  - Peripheral coldness [Recovered/Resolved]
  - Drug effect decreased [Unknown]
  - Pulmonary thrombosis [Not Recovered/Not Resolved]
  - Somnolence [Recovered/Resolved]
  - Peripheral coldness [Recovered/Resolved]

NARRATIVE: CASE EVENT DATE: 201810
